FAERS Safety Report 5782574-1 (Version None)
Quarter: 2008Q2

REPORT INFORMATION
  Report Type: 
  Country: None (occurrence: None)
  Receive Date: 20080624
  Receipt Date: 20080611
  Transmission Date: 20081010
  Serious: Yes (Death)
  Sender: FDA-Public Use
  Company Number: US-PFIZER INC-2008050144

PATIENT
  Sex: Female

DRUGS (1)
  1. GEODON [Suspect]
     Indication: AGITATION
     Route: 030

REACTIONS (1)
  - CARDIAC ARREST [None]
